FAERS Safety Report 14249273 (Version 1)
Quarter: 2017Q4

REPORT INFORMATION
  Report Type: Report from Study
  Country: US (occurrence: US)
  Receive Date: 20171204
  Receipt Date: 20171204
  Transmission Date: 20180321
  Serious: Yes (Hospitalization, Other)
  Sender: FDA-Public Use
  Company Number: US-GILEAD-2017-0307740

PATIENT
  Age: 73 Year
  Sex: Male

DRUGS (12)
  1. ASPIR 81 [Concomitant]
  2. COREG [Concomitant]
     Active Substance: CARVEDILOL
  3. FINASTERIDE. [Concomitant]
     Active Substance: FINASTERIDE
  4. FLOMAX [Concomitant]
     Active Substance: TAMSULOSIN HYDROCHLORIDE
  5. LORAZEPAM. [Concomitant]
     Active Substance: LORAZEPAM
  6. ATIVAN [Concomitant]
     Active Substance: LORAZEPAM
  7. LASIX [Concomitant]
     Active Substance: FUROSEMIDE
  8. FUROSEMIDE. [Concomitant]
     Active Substance: FUROSEMIDE
  9. DICYCLOMINE                        /00068601/ [Concomitant]
     Active Substance: DICYCLOMINE HYDROCHLORIDE
  10. STIOLTO RESPIMAT [Concomitant]
     Active Substance: OLODATEROL HYDROCHLORIDE\TIOTROPIUM BROMIDE MONOHYDRATE
  11. SYMBICORT [Concomitant]
     Active Substance: BUDESONIDE\FORMOTEROL FUMARATE DIHYDRATE
  12. IDELALISIB [Suspect]
     Active Substance: IDELALISIB
     Indication: CHRONIC LYMPHOCYTIC LEUKAEMIA
     Dosage: 150 MG, UNK
     Route: 065
     Dates: start: 20170203

REACTIONS (2)
  - Cardiac disorder [Unknown]
  - Pneumonia [Unknown]
